FAERS Safety Report 7389218-6 (Version None)
Quarter: 2011Q2

REPORT INFORMATION
  Report Type: 
  Country: None (occurrence: None)
  Receive Date: 20110401
  Receipt Date: 20110323
  Transmission Date: 20111010
  Serious: Yes (Disabling)
  Sender: FDA-Public Use
  Company Number: CZ-ASTRAZENECA-2011SE16341

PATIENT
  Age: 40 Year
  Sex: Male

DRUGS (1)
  1. MARCAINE [Suspect]
     Route: 050

REACTIONS (1)
  - PARESIS [None]
